FAERS Safety Report 8462679-7 (Version None)
Quarter: 2012Q2

REPORT INFORMATION
  Report Type: 
  Country: None (occurrence: None)
  Receive Date: 20120625
  Receipt Date: 20120613
  Transmission Date: 20120825
  Serious: Yes (Other)
  Sender: FDA-Public Use
  Company Number: JP-VERTEX PHARMACEUTICALS INC.-AE-2012-008976

PATIENT
  Age: 55 Year
  Sex: Female

DRUGS (8)
  1. RIBAVIRIN [Concomitant]
     Indication: HEPATITIS C
     Route: 048
     Dates: start: 20120417, end: 20120507
  2. PEGINTERFERON ALFA-2B [Concomitant]
     Indication: HEPATITIS C
     Route: 058
     Dates: start: 20120417
  3. URSO 250 [Concomitant]
     Route: 048
  4. MAGLAX [Concomitant]
     Route: 048
     Dates: start: 20120508
  5. TELAVIC (TELAPREVIR) [Suspect]
     Indication: HEPATITIS C
     Route: 048
     Dates: start: 20120417
  6. RIBAVIRIN [Concomitant]
     Route: 048
     Dates: start: 20120508, end: 20120514
  7. RIBAVIRIN [Concomitant]
     Route: 048
     Dates: start: 20120529
  8. CLARITIN [Concomitant]
     Route: 048
     Dates: start: 20120421

REACTIONS (1)
  - WHITE BLOOD CELL COUNT DECREASED [None]
